FAERS Safety Report 14639980 (Version 1)
Quarter: 2018Q1

REPORT INFORMATION
  Report Type: Spontaneous
  Country: DE (occurrence: DE)
  Receive Date: 20180315
  Receipt Date: 20180315
  Transmission Date: 20180509
  Serious: Yes (Other)
  Sender: FDA-Public Use
  Company Number: DE-CIPLA LTD.-2018DE11252

PATIENT

DRUGS (6)
  1. ARCOXIA [Interacting]
     Active Substance: ETORICOXIB
     Dosage: 1 DF, DAILY DOSE: 1 DF DOSAGE FORM EVERY DAY
     Route: 065
     Dates: start: 20170927, end: 20170929
  2. ARCOXIA [Interacting]
     Active Substance: ETORICOXIB
     Indication: INTERVERTEBRAL DISC DISORDER
     Dosage: 3 DF, UNK AM 2. TAG - 3
     Route: 065
  3. ORPHENADRINE [Suspect]
     Active Substance: ORPHENADRINE
     Indication: PRODUCT USED FOR UNKNOWN INDICATION
     Dosage: 2 DF, PER DAY, DAILY DOSE: 2 DF DOSAGE FORM EVERY DAY
     Route: 065
     Dates: start: 20170927, end: 20170929
  4. ARCOXIA [Interacting]
     Active Substance: ETORICOXIB
     Dosage: 1 DF, UNK AM 3. TAG - 1
     Route: 065
  5. DEXAMETHASON                       /00016001/ [Concomitant]
     Active Substance: DEXAMETHASONE
     Indication: PRODUCT USED FOR UNKNOWN INDICATION
     Dosage: UNK
     Route: 065
     Dates: start: 20170927, end: 20170930
  6. PANTOPRAZOL HEXAL [Interacting]
     Active Substance: PANTOPRAZOLE
     Indication: PROPHYLAXIS AGAINST GASTROINTESTINAL ULCER
     Dosage: 1 DF, PER DAY
     Route: 065
     Dates: start: 20170927, end: 20170929

REACTIONS (21)
  - Confusional state [Unknown]
  - Vision blurred [Unknown]
  - Anxiety [Unknown]
  - Hot flush [Unknown]
  - Tremor [Unknown]
  - Dyspnoea [Unknown]
  - Hypoaesthesia [Unknown]
  - Haemorrhoids [Unknown]
  - Disorientation [Unknown]
  - Asthenia [Unknown]
  - Heart rate increased [Unknown]
  - Disturbance in attention [Unknown]
  - Arthralgia [Unknown]
  - Parosmia [Unknown]
  - Dizziness [Unknown]
  - Dry mouth [Unknown]
  - Fatigue [Unknown]
  - Paraesthesia [Unknown]
  - Irritable bowel syndrome [Unknown]
  - Dysgeusia [Unknown]
  - Memory impairment [Unknown]

NARRATIVE: CASE EVENT DATE: 20170930
